FAERS Safety Report 20130750 (Version 2)
Quarter: 2021Q4

REPORT INFORMATION
  Report Type: Report from Study
  Country: FR (occurrence: FR)
  Receive Date: 20211130
  Receipt Date: 20211215
  Transmission Date: 20220303
  Serious: No
  Sender: FDA-Public Use
  Company Number: FR-SHIRE-FR201738219

PATIENT
  Age: 57 Year
  Sex: Female

DRUGS (24)
  1. TEDUGLUTIDE [Suspect]
     Active Substance: TEDUGLUTIDE
     Indication: Short-bowel syndrome
     Dosage: 2.6 MILLIGRAM, QD
     Route: 065
     Dates: start: 20160519, end: 20160807
  2. TEDUGLUTIDE [Suspect]
     Active Substance: TEDUGLUTIDE
     Indication: Short-bowel syndrome
     Dosage: 2.6 MILLIGRAM, QD
     Route: 065
     Dates: start: 20160519, end: 20160807
  3. TEDUGLUTIDE [Suspect]
     Active Substance: TEDUGLUTIDE
     Indication: Short-bowel syndrome
     Dosage: 2.6 MILLIGRAM, QD
     Route: 065
     Dates: start: 20160519, end: 20160807
  4. TEDUGLUTIDE [Suspect]
     Active Substance: TEDUGLUTIDE
     Indication: Short-bowel syndrome
     Dosage: 2.6 MILLIGRAM, QD
     Route: 065
     Dates: start: 20160519, end: 20160807
  5. TEDUGLUTIDE [Suspect]
     Active Substance: TEDUGLUTIDE
     Dosage: 2.4 MILLIGRAM, QD
     Route: 065
     Dates: start: 20160808, end: 20180315
  6. TEDUGLUTIDE [Suspect]
     Active Substance: TEDUGLUTIDE
     Dosage: 2.4 MILLIGRAM, QD
     Route: 065
     Dates: start: 20160808, end: 20180315
  7. TEDUGLUTIDE [Suspect]
     Active Substance: TEDUGLUTIDE
     Dosage: 2.4 MILLIGRAM, QD
     Route: 065
     Dates: start: 20160808, end: 20180315
  8. TEDUGLUTIDE [Suspect]
     Active Substance: TEDUGLUTIDE
     Dosage: 2.4 MILLIGRAM, QD
     Route: 065
     Dates: start: 20160808, end: 20180315
  9. TEDUGLUTIDE [Suspect]
     Active Substance: TEDUGLUTIDE
     Dosage: 2 MILLIGRAM
     Route: 065
     Dates: start: 20180316, end: 20190603
  10. TEDUGLUTIDE [Suspect]
     Active Substance: TEDUGLUTIDE
     Dosage: 2 MILLIGRAM
     Route: 065
     Dates: start: 20180316, end: 20190603
  11. TEDUGLUTIDE [Suspect]
     Active Substance: TEDUGLUTIDE
     Dosage: 2 MILLIGRAM
     Route: 065
     Dates: start: 20180316, end: 20190603
  12. TEDUGLUTIDE [Suspect]
     Active Substance: TEDUGLUTIDE
     Dosage: 2 MILLIGRAM
     Route: 065
     Dates: start: 20180316, end: 20190603
  13. TEDUGLUTIDE [Suspect]
     Active Substance: TEDUGLUTIDE
     Dosage: 2.4 MILLIGRAM, 4 DOSE PER WEEK
     Route: 065
     Dates: start: 20190604, end: 20211011
  14. TEDUGLUTIDE [Suspect]
     Active Substance: TEDUGLUTIDE
     Dosage: 2.4 MILLIGRAM, 4 DOSE PER WEEK
     Route: 065
     Dates: start: 20190604, end: 20211011
  15. TEDUGLUTIDE [Suspect]
     Active Substance: TEDUGLUTIDE
     Dosage: 2.4 MILLIGRAM, 4 DOSE PER WEEK
     Route: 065
     Dates: start: 20190604, end: 20211011
  16. TEDUGLUTIDE [Suspect]
     Active Substance: TEDUGLUTIDE
     Dosage: 2.4 MILLIGRAM, 4 DOSE PER WEEK
     Route: 065
     Dates: start: 20190604, end: 20211011
  17. TEDUGLUTIDE [Suspect]
     Active Substance: TEDUGLUTIDE
     Dosage: 2.4 MILLIGRAM, 2 DOSE PER WEEK
     Route: 065
     Dates: start: 20211012
  18. TEDUGLUTIDE [Suspect]
     Active Substance: TEDUGLUTIDE
     Dosage: 2.4 MILLIGRAM, 2 DOSE PER WEEK
     Route: 065
     Dates: start: 20211012
  19. TEDUGLUTIDE [Suspect]
     Active Substance: TEDUGLUTIDE
     Dosage: 2.4 MILLIGRAM, 2 DOSE PER WEEK
     Route: 065
     Dates: start: 20211012
  20. TEDUGLUTIDE [Suspect]
     Active Substance: TEDUGLUTIDE
     Dosage: 2.4 MILLIGRAM, 2 DOSE PER WEEK
     Route: 065
     Dates: start: 20211012
  21. RIFAXIMIN [Concomitant]
     Active Substance: RIFAXIMIN
     Indication: Abdominal pain
     Dosage: 2 DOSAGE FORM
     Route: 048
     Dates: start: 201712
  22. ERGOCALCIFEROL [Concomitant]
     Active Substance: ERGOCALCIFEROL
     Indication: Diabetes mellitus
     Dosage: 1 INTERNATIONAL UNIT, MONTHLY
     Route: 030
  23. VITAMIN B12 [Concomitant]
     Active Substance: CYANOCOBALAMIN
     Indication: Prophylaxis
     Dosage: 1000 INTERNATIONAL UNIT, MONTHLY
     Route: 030
  24. ALBUTEROL SULFATE [Concomitant]
     Active Substance: ALBUTEROL SULFATE
     Indication: Asthma
     Dosage: 1 INTERNATIONAL UNIT
     Route: 050

REACTIONS (1)
  - Subileus [Recovered/Resolved]

NARRATIVE: CASE EVENT DATE: 20171208
